FAERS Safety Report 17071020 (Version 1)
Quarter: 2019Q4

REPORT INFORMATION
  Report Type: Other
  Country: CA (occurrence: CA)
  Receive Date: 20191125
  Receipt Date: 20191125
  Transmission Date: 20200122
  Serious: Yes (Other)
  Sender: FDA-Public Use
  Company Number: CA-APOTEX-2019AP024975

PATIENT
  Age: 31 Year
  Sex: Female

DRUGS (4)
  1. MEPOLIZUMAB [Suspect]
     Active Substance: MEPOLIZUMAB
     Indication: PRODUCT USED FOR UNKNOWN INDICATION
     Dosage: 100 MG, UNK
     Route: 042
  2. SERTRALINE [Suspect]
     Active Substance: SERTRALINE HYDROCHLORIDE
     Indication: PRODUCT USED FOR UNKNOWN INDICATION
     Dosage: 75 MG, UNK
     Route: 065
  3. ATIVAN [Suspect]
     Active Substance: LORAZEPAM
     Indication: PRODUCT USED FOR UNKNOWN INDICATION
     Dosage: 1 MG, UNK
     Route: 065
  4. MEPOLIZUMAB [Suspect]
     Active Substance: MEPOLIZUMAB
     Indication: ASTHMA

REACTIONS (9)
  - Vitamin D deficiency [Recovering/Resolving]
  - Agoraphobia [Recovering/Resolving]
  - Rhinorrhoea [Recovering/Resolving]
  - Contusion [Recovering/Resolving]
  - Sinusitis [Recovering/Resolving]
  - White blood cell count increased [Recovering/Resolving]
  - Major depression [Recovering/Resolving]
  - Nasopharyngitis [Recovering/Resolving]
  - Anxiety disorder [Recovering/Resolving]
